FAERS Safety Report 16925425 (Version 3)
Quarter: 2020Q2

REPORT INFORMATION
  Report Type: Report from Study
  Country: US (occurrence: US)
  Receive Date: 20191016
  Receipt Date: 20200413
  Transmission Date: 20200713
  Serious: Yes (Death, Other)
  Sender: FDA-Public Use
  Company Number: US-TESARO-2019-TSO01716-US

PATIENT
  Sex: Female

DRUGS (6)
  1. CBD OIL [Concomitant]
     Active Substance: CANNABIDIOL\HERBALS
     Indication: PRODUCT USED FOR UNKNOWN INDICATION
     Dosage: UNK
  2. NIRAPARIB [Suspect]
     Active Substance: NIRAPARIB
     Dosage: 200 MG, QD
     Route: 065
     Dates: end: 201910
  3. XARELTO [Concomitant]
     Active Substance: RIVAROXABAN
     Indication: PRODUCT USED FOR UNKNOWN INDICATION
     Dosage: 20 MG, QD
  4. RESTORIL [Concomitant]
     Active Substance: TEMAZEPAM
     Indication: PRODUCT USED FOR UNKNOWN INDICATION
     Dosage: UNK
  5. TESSALON [Concomitant]
     Active Substance: BENZONATATE
     Indication: PRODUCT USED FOR UNKNOWN INDICATION
     Dosage: UNK
  6. NIRAPARIB [Suspect]
     Active Substance: NIRAPARIB
     Indication: OVARIAN CANCER
     Dosage: 300 MG, QAM W/O FOOD
     Dates: start: 20190410

REACTIONS (19)
  - Carbohydrate antigen 125 increased [Not Recovered/Not Resolved]
  - Restlessness [Recovered/Resolved]
  - Nausea [Recovered/Resolved]
  - Lung neoplasm malignant [Unknown]
  - Psychomotor hyperactivity [Unknown]
  - Upper-airway cough syndrome [Unknown]
  - Death [Fatal]
  - Dyspnoea [Unknown]
  - Irritability [Unknown]
  - Thinking abnormal [Unknown]
  - Constipation [Recovered/Resolved]
  - Product dose omission [Unknown]
  - Malignant pleural effusion [Unknown]
  - Insomnia [Recovered/Resolved]
  - Cough [Unknown]
  - Agitation [Unknown]
  - Visual impairment [Recovered/Resolved]
  - Anxiety [Recovered/Resolved]
  - Diarrhoea [Unknown]
